FAERS Safety Report 11284478 (Version 2)
Quarter: 2015Q4

REPORT INFORMATION
  Report Type: Spontaneous
  Country: US (occurrence: US)
  Receive Date: 20150720
  Receipt Date: 20151002
  Transmission Date: 20160304
  Serious: Yes (Hospitalization, Other)
  Sender: FDA-Public Use
  Company Number: US-ELI_LILLY_AND_COMPANY-US201507004291

PATIENT
  Age: 79 Year
  Sex: Male
  Weight: 65 kg

DRUGS (8)
  1. AMLODIPINE [Concomitant]
     Active Substance: AMLODIPINE BESYLATE
  2. ALLOPURINOL. [Concomitant]
     Active Substance: ALLOPURINOL
  3. CYRAMZA [Suspect]
     Active Substance: RAMUCIRUMAB
     Indication: GASTRIC CANCER
     Dosage: 8 MG/KG, CYCLICAL EVERY 2 WEEKS
     Route: 042
     Dates: start: 20140728, end: 20150717
  4. ONDANSETRON [Concomitant]
     Active Substance: ONDANSETRON
  5. NEUROFEN [Concomitant]
     Active Substance: IBUPROFEN
  6. OXYCONTIN [Concomitant]
     Active Substance: OXYCODONE HYDROCHLORIDE
  7. MEGACE [Concomitant]
     Active Substance: MEGESTROL ACETATE
  8. OXYCODONE [Concomitant]
     Active Substance: OXYCODONE

REACTIONS (1)
  - Posterior reversible encephalopathy syndrome [Recovered/Resolved]

NARRATIVE: CASE EVENT DATE: 20150526
